FAERS Safety Report 4352829-6 (Version None)
Quarter: 2004Q2

REPORT INFORMATION
  Report Type: 
  Country: None (occurrence: None)
  Receive Date: 20040504
  Receipt Date: 20040322
  Transmission Date: 20050107
  Serious: Yes (Death, Other)
  Sender: FDA-Public Use
  Company Number: PHFR2004GB01483

PATIENT
  Sex: Female

DRUGS (13)
  1. GLEEVEC [Suspect]
     Indication: NEOPLASM
     Dosage: 400 MG/DAY
     Route: 048
     Dates: start: 20040211, end: 20040301
  2. CLARITHROMYCIN [Concomitant]
     Indication: LOWER RESPIRATORY TRACT INFECTION
     Dosage: 500 MG, BID
     Route: 048
     Dates: start: 20040303, end: 20040304
  3. MST CONTINUS ^ASTA MEDICA^ [Concomitant]
     Indication: PAIN
     Dosage: 50 MG, BID
     Route: 048
     Dates: start: 20040201, end: 20040304
  4. TAMOXIFEN CITRATE [Concomitant]
     Indication: BREAST CANCER
     Dosage: 20 MG, QD
     Route: 048
     Dates: end: 20040304
  5. SERTRALINE [Concomitant]
     Dosage: 100 MG, QD
     Route: 048
     Dates: end: 20040304
  6. ZOLPIDEM [Concomitant]
     Indication: SLEEP DISORDER
     Dosage: 5 MG NOCTE
     Route: 048
     Dates: start: 20040201, end: 20040304
  7. GABAPENTIN [Concomitant]
     Indication: NEUROPATHIC PAIN
     Dosage: 600 MG, TID
     Route: 048
     Dates: end: 20040304
  8. IBUPROFEN [Concomitant]
     Indication: PAIN
     Dosage: 400 MG, TID
     Route: 048
     Dates: start: 20040302, end: 20040304
  9. ACETAMINOPHEN [Concomitant]
     Indication: PAIN
     Dosage: 1 G, PRN
     Route: 048
     Dates: start: 20040302, end: 20040304
  10. TEMAZEPAM [Concomitant]
     Indication: SLEEP DISORDER
     Dosage: 10 MG NOCTE
     Route: 048
     Dates: start: 20040302, end: 20040302
  11. SEVREDOL [Concomitant]
     Indication: PAIN
     Dosage: 15 MG, PRN
     Route: 048
     Dates: start: 20040302, end: 20040304
  12. MEGACE [Concomitant]
     Dosage: 2 OT NOCTE
     Route: 048
     Dates: start: 20040201, end: 20040304
  13. MANEVAC [Concomitant]
     Dosage: 2 NOCTE
     Route: 048

REACTIONS (7)
  - ABDOMINAL NEOPLASM [None]
  - CONTUSION [None]
  - GASTROINTESTINAL HAEMORRHAGE [None]
  - HAEMOGLOBIN DECREASED [None]
  - LOWER RESPIRATORY TRACT INFECTION [None]
  - MALIGNANT NEOPLASM PROGRESSION [None]
  - PLATELET COUNT DECREASED [None]
